FAERS Safety Report 25335973 (Version 1)
Quarter: 2025Q2

REPORT INFORMATION
  Report Type: Spontaneous
  Country: US (occurrence: None)
  Receive Date: 20250519
  Receipt Date: 20250519
  Transmission Date: 20250717
  Serious: Yes (Hospitalization)
  Sender: FDA-CTU
  Company Number: None

PATIENT
  Age: 4 Year
  Sex: Male
  Weight: 15.4 kg

DRUGS (13)
  1. MARALIXIBAT [Suspect]
     Active Substance: MARALIXIBAT
     Indication: Alagille syndrome
     Dosage: FREQUENCY : DAILY;?
     Route: 048
  2. MARALIXIBAT [Suspect]
     Active Substance: MARALIXIBAT
     Indication: Cholestasis
  3. MARALIXIBAT [Suspect]
     Active Substance: MARALIXIBAT
     Indication: Pruritus
  4. CALCITRIOL [Concomitant]
     Active Substance: CALCITRIOL
  5. HYDROXYZINE [Concomitant]
     Active Substance: HYDROXYZINE HYDROCHLORIDE
  6. LEVOTHYROXINE [Concomitant]
     Active Substance: LEVOTHYROXINE
  7. DEKAs Plus Multivitamin with minerals [Concomitant]
  8. PHYTONADIONE [Concomitant]
     Active Substance: PHYTONADIONE
  9. POLYETHYLENE GLYCOL [Concomitant]
     Active Substance: POLYETHYLENE GLYCOL
  10. RIFAMPIN [Concomitant]
     Active Substance: RIFAMPIN
  11. SENNA [Concomitant]
     Active Substance: SENNOSIDES
  12. URSODIOL [Concomitant]
     Active Substance: URSODIOL
  13. Aqua-E Vitamin E [Concomitant]

REACTIONS (4)
  - Femur fracture [None]
  - Road traffic accident [None]
  - Limb deformity [None]
  - Blood parathyroid hormone increased [None]

NARRATIVE: CASE EVENT DATE: 20250420
